FAERS Safety Report 5251568-7 (Version None)
Quarter: 2007Q1

REPORT INFORMATION
  Report Type: 
  Country: None (occurrence: None)
  Receive Date: 20070228
  Receipt Date: 20060919
  Transmission Date: 20070707
  Serious: No
  Sender: FDA-Public Use
  Company Number: US-GLAXOSMITHKLINE-A0620672A

PATIENT
  Age: 10 Year
  Sex: Female

DRUGS (3)
  1. LAMICTAL [Suspect]
     Route: 048
  2. TRILEPTAL [Concomitant]
  3. ATIVAN [Concomitant]

REACTIONS (1)
  - CHROMATURIA [None]
